FAERS Safety Report 9084593 (Version 3)
Quarter: 2014Q3

REPORT INFORMATION
  Report Type: Spontaneous
  Country: US (occurrence: US)
  Receive Date: 20130131
  Receipt Date: 20140707
  Transmission Date: 20150326
  Serious: Yes (Hospitalization)
  Sender: FDA-Public Use
  Company Number: US-PFIZER INC-2013032096

PATIENT
  Age: 56 Year
  Sex: Female

DRUGS (1)
  1. RAPAMUNE [Suspect]
     Active Substance: SIROLIMUS
     Indication: RENAL TRANSPLANT
     Dosage: 1 MG
     Route: 048
     Dates: start: 20100624

REACTIONS (5)
  - Circumstance or information capable of leading to medication error [Unknown]
  - Nasopharyngitis [Unknown]
  - Product packaging issue [Unknown]
  - Malaise [Unknown]
  - Cardiac disorder [Unknown]

NARRATIVE: CASE EVENT DATE: 201301
